FAERS Safety Report 7043678-9 (Version None)
Quarter: 2010Q4

REPORT INFORMATION
  Report Type: 
  Country: None (occurrence: None)
  Receive Date: 20101013
  Receipt Date: 20100225
  Transmission Date: 20110411
  Serious: No
  Sender: FDA-Public Use
  Company Number: US-MYLANLABS-2009S1011569

PATIENT
  Age: 67 Year
  Sex: Male
  Weight: 74.84 kg

DRUGS (6)
  1. CARBIDOPA AND LEVODOPA [Suspect]
     Indication: PARKINSON'S DISEASE
     Route: 048
     Dates: start: 20080101
  2. CARBIDOPA AND LEVODOPA [Suspect]
     Route: 048
     Dates: start: 20080101
  3. CARBIDOPA AND LEVODOPA [Suspect]
     Route: 048
     Dates: start: 20080101
  4. CARBIDOPA AND LEVODOPA [Suspect]
     Route: 048
     Dates: start: 20080101
  5. MELATONIN [Concomitant]
  6. TYLENOL [Concomitant]

REACTIONS (5)
  - ASTHENIA [None]
  - DRUG INEFFECTIVE [None]
  - INSOMNIA [None]
  - PARKINSON'S DISEASE [None]
  - TREMOR [None]
